FAERS Safety Report 7915013-2 (Version None)
Quarter: 2011Q4

REPORT INFORMATION
  Report Type: 
  Country: None (occurrence: None)
  Receive Date: 20111115
  Receipt Date: 20110929
  Transmission Date: 20120403
  Serious: Yes (Death, Hospitalization, Other)
  Sender: FDA-Public Use
  Company Number: HU-ROCHE-772422

PATIENT
  Sex: Female
  Weight: 116 kg

DRUGS (16)
  1. SIMVASTATIN [Concomitant]
     Indication: HYPERLIPIDAEMIA
     Route: 048
  2. METFORMIN HCL [Concomitant]
     Indication: DIABETES MELLITUS
     Route: 048
  3. METHOTREXATE [Concomitant]
     Route: 048
  4. NEBIVOLOL HCL [Concomitant]
     Indication: HYPERTENSION
     Route: 048
  5. UNKNOWN MEDICATION [Concomitant]
     Route: 048
  6. FOLIC ACID [Concomitant]
     Route: 048
  7. HUMAN ACTRAPID [Concomitant]
     Indication: DIABETES MELLITUS
     Dosage: R: 24E D:22E E: 22E DAILY
     Route: 058
  8. INSULATARD NPH HUMAN [Concomitant]
     Indication: DIABETES MELLITUS
     Dosage: E: 22E DAILY
     Route: 058
  9. ACTEMRA [Suspect]
     Indication: RHEUMATOID ARTHRITIS
     Dosage: STARTING DOSE: 6.8 MG/KG, DOSAGE WAS GIVEN ON 12 JAN 2011, 09 FEB 2011
     Route: 042
     Dates: start: 20101215, end: 20110318
  10. LISINOPRIL [Concomitant]
     Indication: HYPERTENSION
     Dosage: 2X 10MG DAILY
     Route: 048
  11. AMLODIPINE [Concomitant]
     Indication: HYPERTENSION
     Dosage: 2X5MG DAILY
     Route: 048
  12. FRUSEMID [Concomitant]
     Indication: HYPERTENSION
     Route: 048
  13. METHYLPREDNISOLONE [Suspect]
     Indication: RHEUMATOID ARTHRITIS
     Route: 048
     Dates: start: 20050101, end: 20110301
  14. ALPRAZOLAM [Concomitant]
     Indication: DEPRESSION
     Route: 048
  15. KALIUM [Concomitant]
     Route: 048
  16. NAPROXEN [Concomitant]
     Indication: RHEUMATOID ARTHRITIS
     Route: 048

REACTIONS (6)
  - ERYSIPELAS [None]
  - BACK PAIN [None]
  - PNEUMONIA [None]
  - SPINAL COMPRESSION FRACTURE [None]
  - VIRAL INFECTION [None]
  - LIVER FUNCTION TEST ABNORMAL [None]
